FAERS Safety Report 15537752 (Version 1)
Quarter: 2018Q4

REPORT INFORMATION
  Report Type: Spontaneous
  Country: US (occurrence: US)
  Receive Date: 20181016
  Receipt Date: 20181016
  Transmission Date: 20190205
  Serious: Yes (Hospitalization)
  Sender: FDA-Public Use
  Company Number: None

PATIENT
  Age: 21 Year
  Sex: Female

DRUGS (26)
  1. HYDROXY HCL [Concomitant]
  2. OMEPRAZOLE. [Concomitant]
     Active Substance: OMEPRAZOLE
  3. ONDANSETRON [Concomitant]
     Active Substance: ONDANSETRON
  4. DICLOFENAC GEL [Concomitant]
     Active Substance: DICLOFENAC
  5. METHOTREXATE. [Concomitant]
     Active Substance: METHOTREXATE
  6. DOXYCYCLINE HYC [Concomitant]
     Active Substance: DOXYCYCLINE HYCLATE
  7. AMITRIPTYLINE [Concomitant]
     Active Substance: AMITRIPTYLINE
  8. OXYCODONE AND ACETAMINOPHEN [Concomitant]
     Active Substance: ACETAMINOPHEN\OXYCODONE HYDROCHLORIDE
  9. BENLYSTA [Suspect]
     Active Substance: BELIMUMAB
     Indication: SYSTEMIC LUPUS ERYTHEMATOSUS
     Route: 058
     Dates: start: 201711
  10. CELECOXIB. [Concomitant]
     Active Substance: CELECOXIB
  11. MELOXICAM. [Concomitant]
     Active Substance: MELOXICAM
  12. ALPRAZOLAM. [Concomitant]
     Active Substance: ALPRAZOLAM
  13. BUSPIRONE [Concomitant]
     Active Substance: BUSPIRONE HYDROCHLORIDE
  14. HYDROXYCHLOR [Concomitant]
     Active Substance: HYDROXYCHLOROQUINE
  15. FOLIC ACID. [Concomitant]
     Active Substance: FOLIC ACID
  16. LYRICA [Concomitant]
     Active Substance: PREGABALIN
  17. NAPROXEN. [Concomitant]
     Active Substance: NAPROXEN
  18. TIZANIDINE. [Concomitant]
     Active Substance: TIZANIDINE
  19. TOPIRAMATE. [Concomitant]
     Active Substance: TOPIRAMATE
  20. DEXVENLAFAX [Concomitant]
  21. ADDERALL XR [Concomitant]
     Active Substance: AMPHETAMINE ASPARTATE\AMPHETAMINE SULFATE\DEXTROAMPHETAMINE SACCHARATE\DEXTROAMPHETAMINE SULFATE
  22. SUMATRIPTAN. [Concomitant]
     Active Substance: SUMATRIPTAN
  23. METOPROLOL. [Concomitant]
     Active Substance: METOPROLOL
  24. AZATHIOPRINE. [Concomitant]
     Active Substance: AZATHIOPRINE
  25. ZOLPIDEM [Concomitant]
     Active Substance: ZOLPIDEM\ZOLPIDEM TARTRATE
  26. MIDOCYCLINE [Concomitant]

REACTIONS (6)
  - Inflammation [None]
  - Nausea [None]
  - Rash [None]
  - Arthralgia [None]
  - Condition aggravated [None]
  - Vomiting [None]

NARRATIVE: CASE EVENT DATE: 201809
